FAERS Safety Report 8240264-X (Version None)
Quarter: 2012Q1

REPORT INFORMATION
  Report Type: 
  Country: None (occurrence: None)
  Receive Date: 20120328
  Receipt Date: 20120328
  Transmission Date: 20120608
  Serious: Yes (Hospitalization, Disabling)
  Sender: FDA-Public Use
  Company Number: None

PATIENT
  Age: 65 Year
  Sex: Female
  Weight: 91.625 kg

DRUGS (9)
  1. REQUIP [Concomitant]
  2. ACTONEL [Suspect]
     Indication: SENILE OSTEOPOROSIS
     Dates: start: 20090407, end: 20120323
  3. PRILOSEC [Concomitant]
     Route: 048
  4. LISINOPRIL [Concomitant]
     Route: 048
  5. FLONASE [Concomitant]
  6. VICODIN [Concomitant]
     Route: 048
  7. IMITREX [Concomitant]
  8. SIMVASTATIN [Concomitant]
     Route: 048
  9. ZOLOFT [Concomitant]
     Route: 048

REACTIONS (2)
  - FALL [None]
  - FEMUR FRACTURE [None]
